FAERS Safety Report 24403846 (Version 2)
Quarter: 2024Q4

REPORT INFORMATION
  Report Type: Spontaneous
  Country: CO (occurrence: CO)
  Receive Date: 20241007
  Receipt Date: 20241028
  Transmission Date: 20250114
  Serious: Yes (Hospitalization, Other)
  Sender: REGENERON
  Company Number: CO-SA-2024SA265139

PATIENT
  Age: 41 Year
  Sex: Male

DRUGS (1)
  1. PRALUENT [Suspect]
     Active Substance: ALIROCUMAB
     Indication: Type IIa hyperlipidaemia
     Dosage: 75 MG, QOW
     Route: 058
     Dates: start: 202405

REACTIONS (8)
  - Renal transplant [Recovering/Resolving]
  - Pancreas transplant [Recovering/Resolving]
  - Urinary tract infection [Recovered/Resolved]
  - Blood creatinine increased [Unknown]
  - Blood cholesterol increased [Unknown]
  - Nausea [Unknown]
  - Dizziness [Unknown]
  - Pain [Unknown]

NARRATIVE: CASE EVENT DATE: 20240101
